FAERS Safety Report 6109283-3 (Version None)
Quarter: 2009Q1

REPORT INFORMATION
  Report Type: 
  Country: None (occurrence: None)
  Receive Date: 20090306
  Receipt Date: 20090221
  Transmission Date: 20090719
  Serious: Yes (Hospitalization)
  Sender: FDA-Public Use
  Company Number: 2008-188691-NL

PATIENT
  Age: 41 Year
  Sex: Male

DRUGS (2)
  1. DEXAMETHASONE TAB [Suspect]
     Indication: CHEMOTHERAPY
     Dosage: 40 MG
     Dates: start: 20050301, end: 20050801
  2. CYCLOPHOSPHAMIDE [Suspect]
     Indication: CHEMOTHERAPY
     Dosage: 400 MG
     Dates: start: 20050301, end: 20050801

REACTIONS (8)
  - ACTIVATED PARTIAL THROMBOPLASTIN TIME PROLONGED [None]
  - ANAEMIA [None]
  - BACK PAIN [None]
  - BLOOD GLUCOSE INCREASED [None]
  - FATIGUE [None]
  - HEPATIC STEATOSIS [None]
  - MULTIPLE MYELOMA [None]
  - RECURRENT CANCER [None]
